FAERS Safety Report 21946638 (Version 2)
Quarter: 2023Q1

REPORT INFORMATION
  Report Type: Spontaneous
  Country: None (occurrence: US)
  Receive Date: 20230202
  Receipt Date: 20230210
  Transmission Date: 20230418
  Serious: No
  Sender: FDA-Public Use
  Company Number: US-SSM Health St. Clare Hospital-2137432

PATIENT
  Age: 25 Year
  Sex: Female

DRUGS (1)
  1. FENTANYL\ROPIVACAINE [Suspect]
     Active Substance: FENTANYL\ROPIVACAINE
     Indication: Epidural analgesia
     Route: 008

REACTIONS (2)
  - Facial paralysis [Unknown]
  - Miosis [Unknown]
